FAERS Safety Report 6287109-5 (Version None)
Quarter: 2009Q3

REPORT INFORMATION
  Report Type: 
  Country: None (occurrence: None)
  Receive Date: 20090728
  Receipt Date: 20090716
  Transmission Date: 20100115
  Serious: Yes (Hospitalization)
  Sender: FDA-Public Use
  Company Number: US-PFIZER INC-2009242501

PATIENT
  Sex: Male

DRUGS (5)
  1. SOLU-CORTEF [Suspect]
  2. ALDACTONE [Concomitant]
  3. HUMALOG [Concomitant]
  4. LANTUS [Concomitant]
  5. LASIX [Concomitant]

REACTIONS (1)
  - HICCUPS [None]
